FAERS Safety Report 8824536 (Version 1)
Quarter: 2012Q4

REPORT INFORMATION
  Report Type: 
  Country: CN (occurrence: CN)
  Receive Date: 20121004
  Receipt Date: 20121004
  Transmission Date: 20130627
  Serious: Yes (Hospitalization)
  Sender: FDA-Public Use
  Company Number: CN-JNJFOC-20120913202

PATIENT
  Age: 20 Year
  Sex: Female

DRUGS (3)
  1. REMICADE [Suspect]
     Indication: CROHN^S DISEASE
     Route: 042
  2. MESALAMINE [Concomitant]
     Route: 048
  3. AZATHIOPRINE [Concomitant]
     Route: 065

REACTIONS (1)
  - Lupus-like syndrome [Recovered/Resolved]
